FAERS Safety Report 8615231-4 (Version None)
Quarter: 2012Q3

REPORT INFORMATION
  Report Type: 
  Country: None (occurrence: None)
  Receive Date: 20120823
  Receipt Date: 20120820
  Transmission Date: 20120928
  Serious: No
  Sender: FDA-Public Use
  Company Number: US-PFIZER INC-2012203701

PATIENT
  Sex: Female
  Weight: 73.469 kg

DRUGS (1)
  1. ADVIL [Suspect]
     Dosage: UNK
     Route: 048

REACTIONS (2)
  - INCORRECT DOSE ADMINISTERED [None]
  - INSOMNIA [None]
